FAERS Safety Report 5930653-8 (Version None)
Quarter: 2008Q4

REPORT INFORMATION
  Report Type: 
  Country: None (occurrence: None)
  Receive Date: 20081027
  Receipt Date: 20081023
  Transmission Date: 20090506
  Serious: Yes (Other)
  Sender: FDA-Public Use
  Company Number: JP-BAYER-200812515BYL

PATIENT
  Age: 13 Year
  Sex: Male

DRUGS (1)
  1. KOGENATE FS [Suspect]
     Indication: HAEMOPHILIA
     Route: 042

REACTIONS (1)
  - HEPATITIS C ANTIBODY POSITIVE [None]
